FAERS Safety Report 7347413-6 (Version None)
Quarter: 2011Q1

REPORT INFORMATION
  Report Type: 
  Country: None (occurrence: None)
  Receive Date: 20110311
  Receipt Date: 20110303
  Transmission Date: 20110831
  Serious: Yes (Other)
  Sender: FDA-Public Use
  Company Number: DE-ROCHE-764492

PATIENT
  Age: 40 Year
  Sex: Female

DRUGS (2)
  1. VINORELBIN [Concomitant]
  2. XELODA [Suspect]
     Route: 065
     Dates: start: 20110125

REACTIONS (4)
  - ABDOMINAL PAIN UPPER [None]
  - HEPATIC STEATOSIS [None]
  - FLATULENCE [None]
  - HYPERTRICHOSIS [None]
